FAERS Safety Report 7030925-2 (Version None)
Quarter: 2010Q4

REPORT INFORMATION
  Report Type: 
  Country: None (occurrence: None)
  Receive Date: 20101006
  Receipt Date: 20100921
  Transmission Date: 20110411
  Serious: Yes (Other)
  Sender: FDA-Public Use
  Company Number: NO-GENENTECH-307247

PATIENT
  Sex: Female

DRUGS (3)
  1. MABTHERA [Suspect]
     Indication: NON-HODGKIN'S LYMPHOMA
     Dosage: 250 MG/M2, UNK
     Route: 042
     Dates: start: 20041021, end: 20041021
  2. MABTHERA [Suspect]
     Dosage: 250 MG/M2, UNK
     Route: 042
     Dates: start: 20041028, end: 20041028
  3. ZEVALIN [Suspect]
     Indication: NON-HODGKIN'S LYMPHOMA
     Dosage: UNK
     Route: 042
     Dates: start: 20041028, end: 20041028

REACTIONS (1)
  - SQUAMOUS CELL CARCINOMA OF SKIN [None]
